FAERS Safety Report 9267755 (Version 1)
Quarter: 2013Q2

REPORT INFORMATION
  Report Type: Spontaneous
  Country: US (occurrence: US)
  Receive Date: 20130502
  Receipt Date: 20130502
  Transmission Date: 20140414
  Serious: Yes (Hospitalization, Other)
  Sender: FDA-Public Use
  Company Number: US-ALEXION-A201200941

PATIENT
  Age: 33 Year
  Sex: 0
  Weight: 59.7 kg

DRUGS (24)
  1. SOLIRIS 300MG [Suspect]
     Indication: HAEMOLYTIC URAEMIC SYNDROME
     Dosage: UNK, Q2W
     Route: 042
  2. SOLIRIS 300MG [Suspect]
     Indication: THROMBOTIC THROMBOCYTOPENIC PURPURA
  3. TYLENOL PM [Concomitant]
  4. VITAMIN B [Concomitant]
  5. VITAMIN C [Concomitant]
  6. VITAMIN E [Concomitant]
  7. PROMETHAZINE [Concomitant]
  8. CELEXA [Concomitant]
  9. HYDRALAZINE [Concomitant]
     Dosage: 25 MG, QID
     Route: 048
  10. ERYTHROPOIETIN [Concomitant]
  11. SEROQUEL [Concomitant]
     Indication: ANTIDEPRESSANT THERAPY
     Dosage: 100 MG, QD
     Route: 048
  12. ENALAPRIL [Concomitant]
     Indication: BLOOD PRESSURE INCREASED
     Dosage: 10 MG, QD
     Route: 048
  13. ZOLOFT [Concomitant]
     Indication: DEPRESSION
     Dosage: 100 MG, QD
     Route: 048
  14. AMLODIPINE [Concomitant]
     Indication: BLOOD PRESSURE INCREASED
     Dosage: 10 MG, QD
     Route: 048
  15. ALBUTEROL [Concomitant]
     Indication: DYSPNOEA
     Dosage: UNK, PRN
  16. CLONIDINE [Concomitant]
     Indication: BLOOD PRESSURE INCREASED
     Dosage: 0.2 MG, QID
     Route: 048
  17. CLONIDINE [Concomitant]
     Dosage: 1 PATCH, QD
     Route: 062
  18. XANAX [Concomitant]
     Indication: ANXIETY
     Dosage: 0.25 MG, QD
     Route: 048
  19. FIORICET [Concomitant]
     Indication: PAIN
     Dosage: 30/325, Q6HR PRN
     Route: 048
  20. ONDANSETRON [Concomitant]
     Indication: NAUSEA
     Dosage: 8 MG, TID
     Route: 048
  21. NORCO [Concomitant]
     Indication: PAIN
     Dosage: 5/500, Q6HR PRN
     Route: 048
  22. MINOXIDIL [Concomitant]
     Indication: BLOOD PRESSURE INCREASED
     Dosage: 5 MG, BID
     Route: 048
  23. LISINOPRIL [Concomitant]
     Indication: BLOOD PRESSURE INCREASED
     Dosage: 40 MG, BID
     Route: 048
  24. NORMODYNE [Concomitant]
     Indication: BLOOD PRESSURE INCREASED
     Dosage: 200 MG, BID
     Route: 048

REACTIONS (11)
  - Hyperkalaemia [Recovering/Resolving]
  - Cardiac failure congestive [Recovering/Resolving]
  - Condition aggravated [Recovering/Resolving]
  - Dialysis device insertion [Unknown]
  - Hypertension [Recovering/Resolving]
  - Seasonal allergy [Unknown]
  - Anaemia [Recovered/Resolved]
  - Epistaxis [Unknown]
  - Myalgia [Unknown]
  - Nausea [Unknown]
  - Vomiting [Unknown]
